FAERS Safety Report 7284453-X (Version None)
Quarter: 2011Q1

REPORT INFORMATION
  Report Type: 
  Country: None (occurrence: None)
  Receive Date: 20110209
  Receipt Date: 20110207
  Transmission Date: 20110831
  Serious: Yes (Other)
  Sender: FDA-Public Use
  Company Number: CA-PFIZER INC-2010018543

PATIENT
  Sex: Female

DRUGS (5)
  1. ELTROXIN [Concomitant]
     Dosage: 1.25 MG, 1X/DAY
  2. CHAMPIX [Suspect]
     Indication: SMOKING CESSATION THERAPY
     Dosage: UNK
     Dates: start: 20070801
  3. TRAZODONE [Concomitant]
     Dosage: 100 MG, DAILY AT BEDTIME
  4. ALTACE [Concomitant]
     Dosage: 5 MG, 1X/DAY
  5. CELEXA [Concomitant]
     Dosage: 20 MG, 1X/DAY

REACTIONS (6)
  - FEELING ABNORMAL [None]
  - VOMITING [None]
  - EMOTIONAL DISTRESS [None]
  - SUICIDAL IDEATION [None]
  - NAUSEA [None]
  - MOOD SWINGS [None]
